FAERS Safety Report 5139755-X (Version None)
Quarter: 2006Q4

REPORT INFORMATION
  Report Type: 
  Country: None (occurrence: None)
  Receive Date: 20061024
  Receipt Date: 20061016
  Transmission Date: 20070319
  Serious: Yes (Other)
  Sender: FDA-Public Use
  Company Number: GBWYE245016OCT06

PATIENT
  Age: 39 Year
  Sex: Male

DRUGS (1)
  1. EFFEXOR XR [Suspect]
     Dosage: 37.5 MG ORAL
     Route: 048

REACTIONS (1)
  - CEREBRAL VENTRICLE DILATATION [None]
